FAERS Safety Report 4372365-0 (Version None)
Quarter: 2004Q2

REPORT INFORMATION
  Report Type: 
  Country: None (occurrence: None)
  Receive Date: 20040526
  Receipt Date: 20040511
  Transmission Date: 20050107
  Serious: Yes (Hospitalization, Disabling)
  Sender: FDA-Public Use
  Company Number: 2004EU000962

PATIENT
  Age: 40 Year
  Sex: Female

DRUGS (6)
  1. PROGRAF [Suspect]
     Indication: LUNG TRANSPLANT
     Dosage: 7.00 MG, UID/QD, ORAL
     Route: 048
     Dates: start: 20030810
  2. CELLCEPT [Suspect]
     Dosage: 1.00 G, UID/QD, ORAL
     Route: 048
     Dates: start: 20030810
  3. AZATHIOPRINE [Suspect]
     Indication: LUNG TRANSPLANT
     Dosage: 1.00 G, UID/QD, ORAL
     Route: 048
     Dates: start: 20030810
  4. PREDNISONE [Suspect]
     Dosage: 20.00 MG, UID/QD, ORAL
     Route: 048
     Dates: start: 20030810
  5. HUMALOG [Suspect]
     Dosage: 4.00 DF, UID/QD, ORAL
     Route: 048
     Dates: start: 19810101
  6. VORICONAZOLE (VORICONAZOLE) [Suspect]
     Dosage: 300.00 MG, UID/QD, ORAL
     Route: 048
     Dates: start: 20031212

REACTIONS (2)
  - CHOLECYSTITIS [None]
  - CHOLELITHIASIS [None]
